FAERS Safety Report 4531506-2 (Version None)
Quarter: 2004Q4

REPORT INFORMATION
  Report Type: 
  Country: None (occurrence: None)
  Receive Date: 20041220
  Receipt Date: 20041208
  Transmission Date: 20050328
  Serious: Yes (Other)
  Sender: FDA-Public Use
  Company Number: US-JNJFOC-20041202693

PATIENT
  Sex: Female
  Weight: 61.24 kg

DRUGS (7)
  1. REMICADE [Suspect]
     Indication: RHEUMATOID ARTHRITIS
     Route: 042
  2. ARAVA [Concomitant]
     Indication: RHEUMATOID ARTHRITIS
  3. PREDNISONE [Concomitant]
     Indication: RHEUMATOID ARTHRITIS
  4. PREVACID [Concomitant]
  5. IMURAN [Concomitant]
  6. SULFASALAZINE [Concomitant]
     Indication: RHEUMATOID ARTHRITIS
  7. PREVACID [Concomitant]
     Indication: GASTRIC DISORDER

REACTIONS (12)
  - ABASIA [None]
  - HYPOAESTHESIA [None]
  - INFECTION [None]
  - INFUSION RELATED REACTION [None]
  - MASS [None]
  - NEOPLASM [None]
  - PAIN [None]
  - PAIN IN EXTREMITY [None]
  - SHOCK [None]
  - SWELLING [None]
  - TRISMUS [None]
  - URTICARIA [None]
